FAERS Safety Report 5295984-6 (Version None)
Quarter: 2007Q2

REPORT INFORMATION
  Report Type: 
  Country: None (occurrence: None)
  Receive Date: 20070406
  Receipt Date: 20070323
  Transmission Date: 20071010
  Serious: Yes (Hospitalization)
  Sender: FDA-Public Use
  Company Number: FSC_0086_2007

PATIENT
  Age: 78 Year
  Sex: Female

DRUGS (6)
  1. ISOPTIN [Suspect]
     Indication: HYPERTENSION
     Dosage: DF PO
     Route: 048
     Dates: end: 20040517
  2. TORSEMIDE [Suspect]
     Dosage: DF PO
     Route: 048
     Dates: end: 20040517
  3. RAMIPRIL [Suspect]
     Indication: HYPERTENSION
     Dosage: DF PO
     Route: 048
     Dates: end: 20040517
  4. BISOPRODOL FUMARATE [Concomitant]
  5. DIGOXIN [Concomitant]
  6. ACENOCOUMAROL [Concomitant]

REACTIONS (1)
  - ORTHOSTATIC HYPOTENSION [None]
